FAERS Safety Report 13868673 (Version 2)
Quarter: 2017Q3

REPORT INFORMATION
  Report Type: Spontaneous
  Country: US (occurrence: US)
  Receive Date: 20170815
  Receipt Date: 20170913
  Transmission Date: 20171127
  Serious: No
  Sender: FDA-Public Use
  Company Number: US-PFIZER INC-2017352589

PATIENT
  Age: 73 Year
  Sex: Female
  Weight: 83 kg

DRUGS (6)
  1. ATORVASTATIN [Concomitant]
     Active Substance: ATORVASTATIN
     Indication: BLOOD GLUCOSE ABNORMAL
     Dosage: 10 MG, 1X/DAY, ^AT BEDTIME^
  2. FOLIC ACID. [Concomitant]
     Active Substance: FOLIC ACID
     Indication: SUPPLEMENTATION THERAPY
     Dosage: 1 MG, 1X/DAY
  3. METFORMIN [Concomitant]
     Active Substance: METFORMIN HYDROCHLORIDE
     Indication: BLOOD GLUCOSE ABNORMAL
     Dosage: 500 MG, 2X/DAY
  4. METHOTREXATE SODIUM. [Suspect]
     Active Substance: METHOTREXATE SODIUM
     Indication: RHEUMATOID ARTHRITIS
     Dosage: 1 ML, ONCE A WEEK
     Route: 058
  5. LISINOPRIL. [Concomitant]
     Active Substance: LISINOPRIL
     Indication: BLOOD GLUCOSE ABNORMAL
     Dosage: 2.5 MG, 1X/DAY
  6. LEVOTHYROXINE. [Concomitant]
     Active Substance: LEVOTHYROXINE
     Indication: THYROID DISORDER
     Dosage: 75 UG, 1X/DAY

REACTIONS (3)
  - Condition aggravated [Not Recovered/Not Resolved]
  - Drug effect decreased [Not Recovered/Not Resolved]
  - Nodule [Not Recovered/Not Resolved]

NARRATIVE: CASE EVENT DATE: 201702
